FAERS Safety Report 25375618 (Version 1)
Quarter: 2025Q2

REPORT INFORMATION
  Report Type: Spontaneous
  Country: US (occurrence: US)
  Receive Date: 20250529
  Receipt Date: 20250529
  Transmission Date: 20250716
  Serious: No
  Sender: SANOFI AVENTIS
  Company Number: US-SA-2025SA150661

PATIENT
  Age: 75 Year
  Sex: Female

DRUGS (10)
  1. DUPIXENT [Suspect]
     Active Substance: DUPILUMAB
     Indication: Dermatitis atopic
     Route: 058
     Dates: start: 20170725
  2. CLOBETASOL PROPIONATE [Concomitant]
     Active Substance: CLOBETASOL PROPIONATE
  3. DIAZEPAM [Concomitant]
     Active Substance: DIAZEPAM
  4. ELIDEL [Concomitant]
     Active Substance: PIMECROLIMUS
  5. GABAPENTIN [Concomitant]
     Active Substance: GABAPENTIN
  6. LOCOID [Concomitant]
     Active Substance: HYDROCORTISONE BUTYRATE
  7. MUPIROCIN [Concomitant]
     Active Substance: MUPIROCIN
  8. PROTOPIC [Concomitant]
     Active Substance: TACROLIMUS
  9. SYNTHROID [Concomitant]
     Active Substance: LEVOTHYROXINE SODIUM
  10. VALACYCLOVIR HYDROCHLORIDE [Concomitant]
     Active Substance: VALACYCLOVIR HYDROCHLORIDE

REACTIONS (3)
  - Asthma [Unknown]
  - Eczema [Unknown]
  - Product dose omission in error [Unknown]

NARRATIVE: CASE EVENT DATE: 20250501
